FAERS Safety Report 9000631 (Version 1)
Quarter: 2012Q4

REPORT INFORMATION
  Report Type: Spontaneous
  Country: CA (occurrence: None)
  Receive Date: 20121226
  Receipt Date: 20121226
  Transmission Date: 20130627
  Serious: Yes (Other)
  Sender: FDA-Public Use
  Company Number: 2012AP004342

PATIENT
  Age: 68 Year
  Sex: Female

DRUGS (4)
  1. PREDNISONE (PREDNISONE) [Suspect]
     Indication: IMMUNOSUPPRESSANT DRUG THERAPY
  2. CICLOSPORIN (CICLOSPORIN) [Suspect]
     Indication: IMMUNOSUPPRESSANT DRUG THERAPY
  3. MYCOPHENOLATE MOFETIL (MYCOPHENOLATE MOFETIL) [Suspect]
     Indication: IMMUNOSUPPRESSANT DRUG THERAPY
  4. COTRIMOXAZOLE (BACTRIM) [Concomitant]

REACTIONS (1)
  - Pneumocystis jiroveci pneumonia [None]
